FAERS Safety Report 7167838-1 (Version None)
Quarter: 2010Q4

REPORT INFORMATION
  Report Type: 
  Country: None (occurrence: None)
  Receive Date: 20101202
  Receipt Date: 20101124
  Transmission Date: 20110411
  Serious: Yes (Death, Life-Threatening, Other)
  Sender: FDA-Public Use
  Company Number: 20109580

PATIENT
  Sex: Female

DRUGS (1)
  1. LIORESAL [Suspect]
     Indication: MUSCLE SPASTICITY
     Dosage: 1700 MCG, DAILY, INTRATHECAL
     Route: 037

REACTIONS (5)
  - CARDIAC DISORDER [None]
  - CONVULSION [None]
  - ESCHERICHIA INFECTION [None]
  - PNEUMONIA [None]
  - UNRESPONSIVE TO STIMULI [None]
